FAERS Safety Report 9278290 (Version 1)
Quarter: 2013Q2

REPORT INFORMATION
  Report Type: Spontaneous
  Country: US (occurrence: None)
  Receive Date: 20130506
  Receipt Date: 20130506
  Transmission Date: 20140414
  Serious: Yes (Other)
  Sender: FDA-Public Use
  Company Number: None

PATIENT
  Age: 42 Year
  Sex: Male
  Weight: 100.25 kg

DRUGS (1)
  1. ULORIC [Suspect]
     Dosage: 40MG AS NEEDED ONE PER PO
     Route: 048
     Dates: start: 20130501, end: 20130503

REACTIONS (4)
  - Somnolence [None]
  - Dyskinesia [None]
  - Somnolence [None]
  - Abnormal dreams [None]
